FAERS Safety Report 15470523 (Version 3)
Quarter: 2018Q4

REPORT INFORMATION
  Report Type: Report from Study
  Country: KR (occurrence: KR)
  Receive Date: 20181005
  Receipt Date: 20181109
  Transmission Date: 20190205
  Serious: Yes (Other)
  Sender: FDA-Public Use
  Company Number: KR-009507513-1810KOR000711

PATIENT
  Age: 76 Year
  Sex: Male

DRUGS (9)
  1. POSACONAZOLE [Suspect]
     Active Substance: POSACONAZOLE
     Dosage: 300 MG, QD
     Route: 048
     Dates: start: 20180711, end: 20180830
  2. EXJADE [Concomitant]
     Active Substance: DEFERASIROX
     Dosage: 1 DOSAGE FORM, QD,  INDICATION: OTHER
     Route: 048
     Dates: start: 2018
  3. MEGACE [Concomitant]
     Active Substance: MEGESTROL ACETATE
     Indication: HYPOPHAGIA
     Dosage: 1 PKG, BID
     Route: 048
     Dates: start: 20180803, end: 20180822
  4. EXJADE [Concomitant]
     Active Substance: DEFERASIROX
     Dosage: 1 DOSAGE FORM, QD, INDICATION: OTHER
     Route: 048
     Dates: start: 2018
  5. POSACONAZOLE [Suspect]
     Active Substance: POSACONAZOLE
     Indication: ANTIFUNGAL PROPHYLAXIS
     Dosage: 300 MG, BID
     Route: 048
     Dates: start: 20180710, end: 20180710
  6. DEFERASIROX. [Concomitant]
     Active Substance: DEFERASIROX
     Indication: PROPHYLAXIS
     Dosage: 1 DOSAGE FORM, 1 PKG
     Route: 048
     Dates: start: 20180725, end: 20180830
  7. GRASIN [Concomitant]
     Dosage: 1 SYNRINGE, QD, STRENGTH 300MCG/0.7ML
     Route: 058
     Dates: start: 20180803, end: 20180803
  8. LEVOFEXIN [Concomitant]
     Active Substance: LEVOFLOXACIN
     Indication: PROPHYLAXIS
     Dosage: 1 DOSAGE FORM, QD
     Route: 048
     Dates: start: 20180709, end: 20180830
  9. GRASIN [Concomitant]
     Indication: NEUTROPENIA
     Dosage: 1 SYNRINGE, QD, STRENGTH 300MCG/0.7ML
     Route: 058
     Dates: start: 20180814, end: 20180814

REACTIONS (3)
  - Diarrhoea [Unknown]
  - Cellulitis [Unknown]
  - Pyrexia [Recovered/Resolved]

NARRATIVE: CASE EVENT DATE: 20180817
